FAERS Safety Report 5871391-X (Version None)
Quarter: 2008Q3

REPORT INFORMATION
  Report Type: 
  Country: None (occurrence: None)
  Receive Date: 20080904
  Receipt Date: 20080904
  Transmission Date: 20090109
  Serious: Yes (Death, Hospitalization, Disabling)
  Sender: FDA-Public Use
  Company Number: None

PATIENT
  Sex: Male
  Weight: 67.586 kg

DRUGS (1)
  1. DIGOXIN [Suspect]
     Indication: CARDIAC DISORDER
     Dosage: 1 EACH AM MOUTH SEVERAL YEARS
     Route: 048

REACTIONS (3)
  - DRUG DETOXIFICATION [None]
  - OXYGEN SUPPLEMENTATION [None]
  - PHARMACEUTICAL PRODUCT COMPLAINT [None]
